FAERS Safety Report 9626272 (Version 1)
Quarter: 2013Q4

REPORT INFORMATION
  Report Type: Spontaneous
  Country: US (occurrence: None)
  Receive Date: 20131015
  Receipt Date: 20131015
  Transmission Date: 20140711
  Serious: Yes (Other)
  Sender: FDA-Public Use
  Company Number: None

PATIENT
  Sex: Female

DRUGS (12)
  1. TRADJENTA [Suspect]
     Indication: DIABETES MELLITUS
     Route: 048
     Dates: start: 20130925, end: 20131021
  2. MULTIVITAMIN [Concomitant]
  3. METFORMIN [Concomitant]
  4. PROTONIX [Concomitant]
  5. LOPRESSOR [Concomitant]
  6. PROVOCHOL [Concomitant]
  7. SEROQUEL [Concomitant]
  8. LANTUS INSULIN [Concomitant]
  9. NOVOLOG INSULIN [Concomitant]
  10. TIMOLOL EYE DROPS [Concomitant]
  11. VITAMIN D [Concomitant]
  12. FISH OIL [Concomitant]

REACTIONS (2)
  - Photopsia [None]
  - Headache [None]
